FAERS Safety Report 22211209 (Version 1)
Quarter: 2023Q2

REPORT INFORMATION
  Report Type: Spontaneous
  Country: US (occurrence: US)
  Receive Date: 20230414
  Receipt Date: 20230414
  Transmission Date: 20230721
  Serious: Yes (Other)
  Sender: FDA-Public Use
  Company Number: US-AUROBINDO-AUR-APL-2023-030386

PATIENT
  Age: 33 Year
  Sex: Female

DRUGS (16)
  1. METRONIDAZOLE [Suspect]
     Active Substance: METRONIDAZOLE
     Indication: Trichomoniasis
     Dosage: 500 MILLIGRAM
     Route: 048
  2. METRONIDAZOLE [Suspect]
     Active Substance: METRONIDAZOLE
     Dosage: 2 GRAM
     Route: 048
     Dates: start: 20190826
  3. METRONIDAZOLE [Suspect]
     Active Substance: METRONIDAZOLE
     Dosage: 2 GRAM
     Route: 048
     Dates: start: 20190710
  4. METRONIDAZOLE [Suspect]
     Active Substance: METRONIDAZOLE
     Dosage: 500 MILLIGRAM, TWO TIMES A DAY
     Route: 048
     Dates: start: 20201117
  5. METRONIDAZOLE [Suspect]
     Active Substance: METRONIDAZOLE
     Dosage: 500 MILLIGRAM, TWO TIMES A DAY
     Route: 048
     Dates: start: 20220111
  6. TINIDAZOLE [Suspect]
     Active Substance: TINIDAZOLE
     Indication: Trichomoniasis
     Dosage: 1 GRAM, ONCE A DAY
     Route: 048
     Dates: start: 20191023
  7. TINIDAZOLE [Suspect]
     Active Substance: TINIDAZOLE
     Dosage: 1 GRAM, ONCE A DAY
     Route: 048
     Dates: start: 20191107
  8. TINIDAZOLE [Suspect]
     Active Substance: TINIDAZOLE
     Dosage: 2 GRAM, ONCE A DAY
     Route: 048
     Dates: start: 20191125
  9. TINIDAZOLE [Suspect]
     Active Substance: TINIDAZOLE
     Dosage: 2 GRAM, ONCE A DAY
     Route: 048
     Dates: start: 20200107
  10. TINIDAZOLE [Suspect]
     Active Substance: TINIDAZOLE
     Dosage: 1 GRAM, ONCE A DAY
     Route: 048
     Dates: start: 20200722
  11. PAROMOMYCIN [Suspect]
     Active Substance: PAROMOMYCIN
     Indication: Trichomoniasis
     Dosage: 4 G OF 6.25% INTRAVAGINAL PAROMOMYCIN CREAM NIGHTLY
     Route: 067
     Dates: start: 20200722
  12. BORIC ACID [Concomitant]
     Active Substance: BORIC ACID
     Indication: Trichomoniasis
     Dosage: 600 MILLIGRAM, TWO TIMES A DAY
     Route: 067
     Dates: start: 20200821
  13. BORIC ACID [Concomitant]
     Active Substance: BORIC ACID
     Dosage: 600 MILLIGRAM, TWO TIMES A DAY
     Route: 067
     Dates: start: 20210129
  14. BORIC ACID [Concomitant]
     Active Substance: BORIC ACID
     Dosage: 600 MILLIGRAM, TWO TIMES A DAY
     Route: 067
     Dates: start: 20220224
  15. SECNIDAZOLE [Concomitant]
     Active Substance: SECNIDAZOLE
     Indication: Trichomoniasis
     Dosage: 2 GRAM, ONCE A DAY
     Route: 048
     Dates: start: 20220224
  16. NITAZOXANIDE [Concomitant]
     Active Substance: NITAZOXANIDE
     Indication: Trichomoniasis
     Dosage: 1 GRAM, TWO TIMES A DAY
     Route: 048

REACTIONS (1)
  - Treatment failure [Unknown]
